FAERS Safety Report 7326170-3 (Version None)
Quarter: 2011Q1

REPORT INFORMATION
  Report Type: 
  Country: None (occurrence: None)
  Receive Date: 20110302
  Receipt Date: 20110223
  Transmission Date: 20110831
  Serious: Yes (Death)
  Sender: FDA-Public Use
  Company Number: US-JNJFOC-20110201540

PATIENT
  Sex: Female
  Weight: 52.62 kg

DRUGS (4)
  1. PREDNISONE [Concomitant]
     Indication: CROHN'S DISEASE
     Route: 065
  2. LISINOPRIL [Concomitant]
     Indication: HYPERTENSION
     Route: 065
  3. ASA [Concomitant]
     Indication: HYPERTENSION
     Route: 065
  4. REMICADE [Suspect]
     Indication: CROHN'S DISEASE
     Dosage: 3 VIALS
     Route: 042

REACTIONS (2)
  - GASTROINTESTINAL HAEMORRHAGE [None]
  - SMALL INTESTINAL OBSTRUCTION [None]
